FAERS Safety Report 5226721-9 (Version None)
Quarter: 2007Q1

REPORT INFORMATION
  Report Type: 
  Country: None (occurrence: None)
  Receive Date: 20070129
  Receipt Date: 20070118
  Transmission Date: 20070707
  Serious: Yes (Other)
  Sender: FDA-Public Use
  Company Number: CHPA2007US00524

PATIENT
  Age: 56 Year
  Sex: Male
  Weight: 95.2 kg

DRUGS (2)
  1. NICOTINE [Suspect]
     Indication: SMOKING CESSATION THERAPY
     Dosage: 21 MG, QD, TRANSDERMAL
     Route: 062
     Dates: start: 20070101, end: 20070103
  2. PREDNISONE TAB [Concomitant]

REACTIONS (2)
  - BRONCHITIS [None]
  - HAEMOPTYSIS [None]
